FAERS Safety Report 10005516 (Version 1)
Quarter: 2014Q1

REPORT INFORMATION
  Report Type: Spontaneous
  Country: AU (occurrence: AU)
  Receive Date: 20140313
  Receipt Date: 20140313
  Transmission Date: 20141002
  Serious: Yes (Hospitalization, Other)
  Sender: FDA-Public Use
  Company Number: AU-ROCHE-1360633

PATIENT
  Age: 69 Year
  Sex: Male

DRUGS (5)
  1. AVASTIN [Suspect]
     Indication: COLORECTAL CANCER METASTATIC
     Route: 065
     Dates: start: 20130221, end: 20130910
  2. AVASTIN [Suspect]
     Route: 065
     Dates: start: 20130910
  3. 5-FU [Concomitant]
     Indication: COLORECTAL CANCER METASTATIC
  4. FOLINIC ACID [Concomitant]
     Indication: COLORECTAL CANCER METASTATIC
  5. IRINOTECAN [Concomitant]
     Indication: COLORECTAL CANCER METASTATIC

REACTIONS (4)
  - Haemorrhage [Recovered/Resolved]
  - Oesophageal rupture [Recovered/Resolved]
  - Syncope [Recovered/Resolved]
  - Haematemesis [Recovered/Resolved]
